FAERS Safety Report 9720175 (Version 1)
Quarter: 2013Q4

REPORT INFORMATION
  Report Type: Report from Study
  Country: DE (occurrence: DE)
  Receive Date: 20131129
  Receipt Date: 20131129
  Transmission Date: 20140711
  Serious: Yes (Hospitalization)
  Sender: FDA-Public Use
  Company Number: DE-PFIZER INC-2013337801

PATIENT
  Age: 57 Year
  Sex: Female

DRUGS (14)
  1. ADRIAMYCIN [Suspect]
     Indication: MALIGNANT LYMPHOID NEOPLASM
     Dosage: UNK
  2. VINCRISTINE SULFATE [Suspect]
     Indication: MALIGNANT LYMPHOID NEOPLASM
     Dosage: 2 MG, 1X/DAY (LAST DOSE PRIOR TO SAE: 02/NOV/2012)
     Route: 042
  3. CYCLOPHOSPHAMIDE [Suspect]
     Indication: MALIGNANT LYMPHOID NEOPLASM
     Dosage: 1162 MG, 1X/DAY (LAST DOSE PRIOR TO SAE: 02/NOV/2012)
     Route: 042
  4. PREDNISONE [Suspect]
     Indication: MALIGNANT LYMPHOID NEOPLASM
     Dosage: 100 MG, 1X/DAY (LAST DOSE PRIOR TO SAE: 06/NOV/2012)
     Route: 048
     Dates: start: 20121102
  5. ETOPOSIDE [Suspect]
     Indication: MALIGNANT LYMPHOID NEOPLASM
     Dosage: 155 MG, 1X/DAY (LAST DOSE PRIOR TO SAE: 04/NOV/2012)
     Route: 042
     Dates: start: 20121102
  6. RITUXIMAB [Suspect]
     Indication: MALIGNANT LYMPHOID NEOPLASM
     Dosage: 563 MG, 1X/DAY (LAST DOSE PRIOR TO SAE: 02/NOV/2012)
     Route: 042
  7. COTRIMAZOL [Concomitant]
     Dosage: 550 MG, UNK
     Dates: start: 201209
  8. ACICLOVIR [Concomitant]
     Dosage: 1600 MG, UNK
     Dates: start: 201209
  9. ALLOPURINOL [Concomitant]
     Dosage: 300 MG, UNK
     Dates: start: 201209
  10. RAMIPRIL [Concomitant]
     Dosage: 5 MG, DAILY
     Dates: start: 201111, end: 20121115
  11. OXYCODONE [Concomitant]
     Dosage: 10/5 MG, DAILY
     Dates: start: 201209
  12. PANTOPRAZOL [Concomitant]
     Dosage: 40 MG, DAILY
     Dates: start: 201209
  13. CALCITROL [Concomitant]
     Dosage: 1000 IU, DAILY
     Dates: start: 201209
  14. METOPROLOL [Concomitant]

REACTIONS (1)
  - Neutropenic infection [Recovered/Resolved]
